FAERS Safety Report 18149644 (Version 1)
Quarter: 2020Q3

REPORT INFORMATION
  Report Type: Spontaneous
  Country: US (occurrence: US)
  Receive Date: 20200813
  Receipt Date: 20200813
  Transmission Date: 20201103
  Serious: No
  Sender: FDA-Public Use
  Company Number: None

PATIENT
  Age: 66 Year
  Sex: Female
  Weight: 56.25 kg

DRUGS (12)
  1. SALINE NASAL SPRAY [Concomitant]
     Active Substance: SODIUM CHLORIDE
  2. VYACTIVE [Concomitant]
  3. RHIZINATE [Concomitant]
  4. POTASSIUM GLUCONATE [Concomitant]
     Active Substance: POTASSIUM GLUCONATE
  5. BORIC ACID VAGINALLY [Concomitant]
  6. PEPCID AC [Suspect]
     Active Substance: FAMOTIDINE
     Indication: GASTROOESOPHAGEAL REFLUX DISEASE
     Dosage: ?          QUANTITY:0.5 TABLET(S);?
     Route: 048
  7. VITAMIN D [Concomitant]
     Active Substance: VITAMIN D NOS
  8. COD LIVER OIL [Concomitant]
     Active Substance: COD LIVER OIL
  9. TAGAMET [Concomitant]
     Active Substance: CIMETIDINE
  10. ZYRTEC [Concomitant]
     Active Substance: CETIRIZINE HYDROCHLORIDE
  11. COLLAGEN [Concomitant]
     Active Substance: COLLAGEN
  12. COMPOUNDED VAGINAL CREAM [Concomitant]

REACTIONS (9)
  - Blood potassium decreased [None]
  - Thirst [None]
  - Dry mouth [None]
  - Agitation [None]
  - Blood glucose decreased [None]
  - Nervousness [None]
  - Decreased appetite [None]
  - Dyspnoea [None]
  - Blood iron decreased [None]

NARRATIVE: CASE EVENT DATE: 20191129
